FAERS Safety Report 4279860-3 (Version None)
Quarter: 2004Q1

REPORT INFORMATION
  Report Type: 
  Country: None (occurrence: None)
  Receive Date: 20040128
  Receipt Date: 20031215
  Transmission Date: 20041129
  Serious: Yes (Other)
  Sender: FDA-Public Use
  Company Number: GB-BRISTOL-MYERS SQUIBB COMPANY-12460622

PATIENT
  Age: 51 Year
  Sex: Male

DRUGS (2)
  1. DUTONIN [Suspect]
     Indication: DEPRESSION
     Dosage: 100MG 2X/DAYX3YRS;AT 3MOS 50MG AM,100MG PM;AT 6MOS 100MG PM;INCREASED AGAIN 50MG AM,100MG PM
     Route: 048
  2. TRIFLUOPERAZINE HCL [Concomitant]

REACTIONS (3)
  - DRUG ABUSER [None]
  - DRUG DEPENDENCE [None]
  - DRUG WITHDRAWAL SYNDROME [None]
